FAERS Safety Report 8296181-2 (Version None)
Quarter: 2012Q2

REPORT INFORMATION
  Report Type: 
  Country: None (occurrence: None)
  Receive Date: 20120418
  Receipt Date: 20120413
  Transmission Date: 20120825
  Serious: No
  Sender: FDA-Public Use
  Company Number: US-PFIZER INC-2012052570

PATIENT
  Age: 72 Year
  Sex: Female

DRUGS (2)
  1. PREMPRO [Suspect]
     Dosage: UNK
     Dates: start: 19900101
  2. PREMPRO [Suspect]
     Dosage: UNK
     Dates: start: 19500101

REACTIONS (1)
  - NO ADVERSE EVENT [None]
